FAERS Safety Report 8162295-0 (Version None)
Quarter: 2012Q1

REPORT INFORMATION
  Report Type: 
  Country: None (occurrence: None)
  Receive Date: 20120103
  Receipt Date: 20110930
  Transmission Date: 20120608
  Serious: No
  Sender: FDA-Public Use
  Company Number: AE-2011-001952

PATIENT
  Age: 59 Year
  Sex: Male
  Weight: 70.3075 kg

DRUGS (3)
  1. INCIVEK [Suspect]
     Dosage: 1125 MG (375 MG, 1 IN 8 HR), ORAL
     Route: 048
     Dates: start: 20110912
  2. PEGASYS [Concomitant]
  3. RIBAVIRIN [Concomitant]

REACTIONS (2)
  - ANORECTAL DISCOMFORT [None]
  - ABDOMINAL TENDERNESS [None]
